FAERS Safety Report 18691783 (Version 1)
Quarter: 2021Q1

REPORT INFORMATION
  Report Type: Report from Study
  Country: CO (occurrence: CO)
  Receive Date: 20210102
  Receipt Date: 20210102
  Transmission Date: 20210419
  Serious: Yes (Hospitalization)
  Sender: FDA-Public Use
  Company Number: CO-UCBSA-2020053804

PATIENT
  Age: 70 Year
  Sex: Female

DRUGS (1)
  1. CERTOLIZUMAB PEGOL [Suspect]
     Active Substance: CERTOLIZUMAB PEGOL
     Indication: RHEUMATOID ARTHRITIS
     Dosage: 400 MILLIGRAM, EV 4 WEEKS
     Route: 058
     Dates: start: 20191015, end: 20201020

REACTIONS (1)
  - Varicose vein ruptured [Recovered/Resolved]

NARRATIVE: CASE EVENT DATE: 20201109
